FAERS Safety Report 8551943-9 (Version None)
Quarter: 2012Q3

REPORT INFORMATION
  Report Type: 
  Country: None (occurrence: None)
  Receive Date: 20120730
  Receipt Date: 20120725
  Transmission Date: 20120928
  Serious: Yes (Hospitalization)
  Sender: FDA-Public Use
  Company Number: US-GILEAD-2012-0058196

PATIENT
  Sex: Male

DRUGS (3)
  1. LETAIRIS [Suspect]
     Indication: PULMONARY HYPERTENSION
     Dosage: 10 MG, UNK
     Route: 048
     Dates: start: 20120113
  2. LETAIRIS [Suspect]
     Indication: CARDIAC VALVE DISEASE
  3. REVATIO [Concomitant]

REACTIONS (2)
  - FLUID RETENTION [None]
  - DYSPNOEA [None]
